FAERS Safety Report 8391520-6 (Version None)
Quarter: 2012Q1

REPORT INFORMATION
  Report Type: 
  Country: None (occurrence: None)
  Receive Date: 20120323
  Receipt Date: 20110329
  Transmission Date: 20120608
  Serious: Yes (Hospitalization)
  Sender: FDA-Public Use
  Company Number: 163-21880-11033358

PATIENT
  Age: 49 Year
  Sex: Male

DRUGS (7)
  1. REVLIMID [Suspect]
     Indication: MULTIPLE MYELOMA
     Dosage: 10 MG, QD X 21 DAYS, PO
     Route: 048
     Dates: start: 20110311
  2. VELCADE [Concomitant]
  3. CALCIUM CARBONATE [Concomitant]
  4. NEUPOGEN [Concomitant]
  5. DECADRON [Concomitant]
  6. ATIVAN [Concomitant]
  7. CYTOXAN [Concomitant]

REACTIONS (2)
  - CLOSTRIDIAL INFECTION [None]
  - PYREXIA [None]
